FAERS Safety Report 9883534 (Version 3)
Quarter: 2014Q1

REPORT INFORMATION
  Report Type: Spontaneous
  Country: US (occurrence: US)
  Receive Date: 20140210
  Receipt Date: 20140325
  Transmission Date: 20141002
  Serious: Yes (Hospitalization)
  Sender: FDA-Public Use
  Company Number: US-BIOGENIDEC-2014BI010664

PATIENT
  Age: 49 Year
  Sex: Female

DRUGS (7)
  1. TECFIDERA [Suspect]
     Indication: MULTIPLE SCLEROSIS
     Route: 048
     Dates: start: 201306
  2. SOLU-MEDROL [Concomitant]
  3. OXYBUTYNIN [Concomitant]
  4. VITAMIN E [Concomitant]
  5. LISINOPRIL [Concomitant]
  6. DESMOPRESSIN [Concomitant]
  7. BACLOFEN [Concomitant]

REACTIONS (2)
  - Decubitus ulcer [Recovered/Resolved]
  - Aspiration [Unknown]
